FAERS Safety Report 11871294 (Version 1)
Quarter: 2015Q4

REPORT INFORMATION
  Report Type: Spontaneous
  Country: US (occurrence: US)
  Receive Date: 20151228
  Receipt Date: 20151228
  Transmission Date: 20160305
  Serious: Yes (Other)
  Sender: FDA-Public Use
  Company Number: US-MYLANLABS-2015M1047082

PATIENT

DRUGS (1)
  1. ERLOTINIB [Suspect]
     Active Substance: ERLOTINIB
     Indication: NON-SMALL CELL LUNG CANCER
     Dosage: 150 MG DAILY
     Route: 065

REACTIONS (4)
  - Fatigue [Unknown]
  - Foetal growth restriction [Unknown]
  - Rash [Unknown]
  - Maternal exposure during pregnancy [Unknown]
